FAERS Safety Report 7486430-2 (Version None)
Quarter: 2011Q2

REPORT INFORMATION
  Report Type: 
  Country: None (occurrence: None)
  Receive Date: 20110517
  Receipt Date: 20110512
  Transmission Date: 20111010
  Serious: Yes (Death, Life-Threatening, Hospitalization)
  Sender: FDA-Public Use
  Company Number: US-BRISTOL-MYERS SQUIBB COMPANY-15724578

PATIENT
  Age: 65 Year
  Sex: Female
  Weight: 72 kg

DRUGS (3)
  1. TAXOL [Suspect]
     Indication: NON-SMALL CELL LUNG CANCER
     Dosage: LAST DOSE:24MAY2010
     Dates: start: 20100503, end: 20100524
  2. CARBOPLATIN [Suspect]
     Indication: NON-SMALL CELL LUNG CANCER
     Dosage: LAST DOSE: 24MAY2010
     Dates: start: 20100503, end: 20100524
  3. ERBITUX [Suspect]
     Indication: NON-SMALL CELL LUNG CANCER
     Dosage: LAST DOSE: 07JUN2010
     Dates: start: 20100503, end: 20100607

REACTIONS (2)
  - SEPSIS [None]
  - PERICARDIAL EFFUSION [None]
